FAERS Safety Report 9507416 (Version 2)
Quarter: 2013Q4

REPORT INFORMATION
  Report Type: Spontaneous
  Country: US (occurrence: US)
  Receive Date: 20130909
  Receipt Date: 20131105
  Transmission Date: 20140711
  Serious: Yes (Hospitalization)
  Sender: FDA-Public Use
  Company Number: US-BAXTER-2013BAX034566

PATIENT
  Age: 67 Year
  Sex: Female

DRUGS (3)
  1. DIANEAL LOW CALCIUM [Suspect]
     Indication: PERITONEAL DIALYSIS
     Route: 033
  2. DIANEAL LOW CALCIUM [Suspect]
     Indication: PERITONEAL DIALYSIS
     Route: 033
     Dates: start: 20130516
  3. DIANEAL LOW CALCIUM [Suspect]
     Indication: PERITONEAL DIALYSIS
     Route: 033
     Dates: start: 20130516

REACTIONS (5)
  - Cardiac failure congestive [Recovering/Resolving]
  - Diabetes mellitus inadequate control [Recovering/Resolving]
  - Atrioventricular block [Recovering/Resolving]
  - Myocardial infarction [Recovering/Resolving]
  - Oedema peripheral [Recovered/Resolved]
